FAERS Safety Report 10497885 (Version 1)
Quarter: 2014Q4

REPORT INFORMATION
  Report Type: Spontaneous
  Country: US (occurrence: US)
  Receive Date: 20141006
  Receipt Date: 20141006
  Transmission Date: 20150528
  Serious: No
  Sender: FDA-Public Use
  Company Number: US-PFIZER INC-2014272372

PATIENT
  Age: 60 Year
  Sex: Female
  Weight: 56 kg

DRUGS (1)
  1. LATANOPROST. [Suspect]
     Active Substance: LATANOPROST
     Dosage: 1 GTT, 1X/DAY AT NIGHT, EACH EYE
     Route: 047
     Dates: start: 201405

REACTIONS (6)
  - Product quality issue [Unknown]
  - Eye irritation [Unknown]
  - Eye discharge [Unknown]
  - Eye pruritus [Unknown]
  - Dry eye [Unknown]
  - Foreign body sensation in eyes [Unknown]

NARRATIVE: CASE EVENT DATE: 201405
